FAERS Safety Report 4975547-X (Version None)
Quarter: 2006Q2

REPORT INFORMATION
  Report Type: 
  Country: None (occurrence: None)
  Receive Date: 20060410
  Receipt Date: 20060330
  Transmission Date: 20061013
  Serious: No
  Sender: FDA-Public Use
  Company Number: 2006-140656-NL

PATIENT
  Sex: Female

DRUGS (1)
  1. MIRTAZAPINE [Suspect]
     Indication: ANTIDEPRESSANT THERAPY
     Dosage: DF

REACTIONS (5)
  - ANGINA PECTORIS [None]
  - ASTHENIA [None]
  - DEPRESSION [None]
  - HYPOTENSION [None]
  - INSOMNIA [None]
